FAERS Safety Report 6711496-4 (Version None)
Quarter: 2010Q2

REPORT INFORMATION
  Report Type: 
  Country: None (occurrence: None)
  Receive Date: 20100505
  Receipt Date: 20100421
  Transmission Date: 20101027
  Serious: Yes (Other)
  Sender: FDA-Public Use
  Company Number: PHHY2010JP25740

PATIENT

DRUGS (1)
  1. ZOMETA [Suspect]
     Indication: BONE LESION
     Route: 042

REACTIONS (1)
  - OSTEONECROSIS OF JAW [None]
